FAERS Safety Report 24986620 (Version 2)
Quarter: 2025Q1

REPORT INFORMATION
  Report Type: Spontaneous
  Country: US (occurrence: US)
  Receive Date: 20250219
  Receipt Date: 20250226
  Transmission Date: 20250409
  Serious: Yes (Other)
  Sender: BIOGEN
  Company Number: US-BIOGEN-2024BI01289611

PATIENT
  Sex: Female

DRUGS (1)
  1. TYSABRI [Suspect]
     Active Substance: NATALIZUMAB
     Indication: Multiple sclerosis
     Route: 050
     Dates: start: 20241105

REACTIONS (6)
  - Iron deficiency anaemia [Unknown]
  - Biliary colic [Unknown]
  - Renal pain [Unknown]
  - Blood urine present [Unknown]
  - Vomiting [Unknown]
  - Diarrhoea [Unknown]
